FAERS Safety Report 17802941 (Version 1)
Quarter: 2020Q2

REPORT INFORMATION
  Report Type: Spontaneous
  Country: US (occurrence: US)
  Receive Date: 20200519
  Receipt Date: 20200519
  Transmission Date: 20200714
  Serious: Yes (Other)
  Sender: FDA-Public Use
  Company Number: US-GLAXOSMITHKLINE-US2020AMR083533

PATIENT
  Age: 32 Year
  Sex: Female

DRUGS (4)
  1. ONFI [Suspect]
     Active Substance: CLOBAZAM
     Indication: EPILEPSY
     Dosage: 15 MG, QD
     Route: 065
     Dates: start: 201407
  2. LAMICTAL [Suspect]
     Active Substance: LAMOTRIGINE
     Dosage: 250 MG
     Route: 048
  3. PHENOBARBITAL TABLET [Suspect]
     Active Substance: PHENOBARBITAL
     Indication: EPILEPSY
     Dosage: 32 MG, BID
     Route: 048
  4. LAMICTAL [Suspect]
     Active Substance: LAMOTRIGINE
     Indication: EPILEPSY
     Dosage: 625 MG, QD
     Route: 048
     Dates: start: 201205

REACTIONS (3)
  - Feeling abnormal [Unknown]
  - Seizure [Unknown]
  - Depressed mood [Unknown]
